FAERS Safety Report 5786184-1 (Version None)
Quarter: 2008Q2

REPORT INFORMATION
  Report Type: 
  Country: None (occurrence: None)
  Receive Date: 20080624
  Receipt Date: 20080617
  Transmission Date: 20081010
  Serious: Yes (Other)
  Sender: FDA-Public Use
  Company Number: B0482702A

PATIENT
  Sex: Male

DRUGS (6)
  1. PAROXETINE HCL [Suspect]
     Indication: ANXIETY
     Dates: start: 19990427
  2. CIPRAMIL [Concomitant]
     Route: 065
     Dates: start: 19990101
  3. LANSOPRAZOLE [Concomitant]
     Dosage: 15MG TWICE PER DAY
     Dates: start: 19990427, end: 19990505
  4. LOSEC I.V. [Concomitant]
     Dates: start: 19990505
  5. DIAZEPAM [Concomitant]
     Indication: ANXIETY
     Dates: start: 19991101
  6. SONATA [Concomitant]
     Dates: start: 20000701

REACTIONS (11)
  - AGITATION [None]
  - AMNESIA [None]
  - ANXIETY [None]
  - DEPRESSION [None]
  - DIZZINESS [None]
  - DRUG WITHDRAWAL SYNDROME [None]
  - FATIGUE [None]
  - HEADACHE [None]
  - HYPERHIDROSIS [None]
  - PANIC ATTACK [None]
  - SUICIDAL IDEATION [None]
